FAERS Safety Report 14343423 (Version 1)
Quarter: 2018Q1

REPORT INFORMATION
  Report Type: Spontaneous
  Country: IN (occurrence: IN)
  Receive Date: 20180101
  Receipt Date: 20180101
  Transmission Date: 20180509
  Serious: Yes (Other)
  Sender: FDA-Public Use
  Company Number: None

PATIENT
  Age: 47 Year
  Sex: Female
  Weight: 68 kg

DRUGS (5)
  1. GAROIN PHENOBARBITONE AND PHENYTOIN [Suspect]
     Active Substance: PHENOBARBITAL\PHENYTOIN SODIUM
     Indication: SEIZURE
     Route: 048
     Dates: start: 20080702
  2. LAMITOR [Concomitant]
     Active Substance: LAMOTRIGINE
  3. ACITROM [Concomitant]
     Active Substance: ACENOCOUMAROL
  4. LANOXIN [Concomitant]
     Active Substance: DIGOXIN
  5. DYTOR [Concomitant]
     Active Substance: TORSEMIDE

REACTIONS (7)
  - Heart rate increased [None]
  - Palpitations [None]
  - Amnesia [None]
  - Peripheral coldness [None]
  - Vision blurred [None]
  - Lip discolouration [None]
  - Vertigo [None]

NARRATIVE: CASE EVENT DATE: 20171228
